FAERS Safety Report 14098660 (Version 1)
Quarter: 2017Q4

REPORT INFORMATION
  Report Type: Report from Study
  Country: IT (occurrence: IT)
  Receive Date: 20171017
  Receipt Date: 20171017
  Transmission Date: 20180321
  Serious: Yes (Hospitalization)
  Sender: FDA-Public Use
  Company Number: IT-BAYER-2016-237436

PATIENT
  Age: 47 Year
  Sex: Female
  Weight: 49 kg

DRUGS (16)
  1. CIPROXIN [Concomitant]
     Active Substance: CIPROFLOXACIN
     Indication: PYREXIA
     Dosage: UNK
     Dates: start: 20161207
  2. XARELTO [Concomitant]
     Active Substance: RIVAROXABAN
     Dosage: DAILY DOSE 20 MG
     Dates: start: 20150906
  3. PARACETAMOL [Concomitant]
     Active Substance: ACETAMINOPHEN
     Indication: PYREXIA
     Dosage: DAILY DOSE 3 G
     Dates: start: 20161207
  4. POLYETHYLENE GLYCOL [Concomitant]
     Active Substance: POLYETHYLENE GLYCOLS
     Indication: DRUG TOXICITY PROPHYLAXIS
  5. STIVARGA [Suspect]
     Active Substance: REGORAFENIB
     Indication: COLORECTAL CANCER METASTATIC
     Dosage: 80 MG, QD
     Dates: start: 20170117
  6. DEURSIL [Concomitant]
     Active Substance: URSODIOL
     Dosage: DAILY DOSE 600 MG
     Dates: start: 20170216
  7. POLYETHYLENE GLYCOL [Concomitant]
     Active Substance: POLYETHYLENE GLYCOLS
     Indication: DRUG TOXICITY PROPHYLAXIS
  8. STIVARGA [Suspect]
     Active Substance: REGORAFENIB
     Indication: COLORECTAL CANCER METASTATIC
     Dosage: 120 MG, QD
     Dates: start: 20161220, end: 20170106
  9. TACHIPIRINA [Concomitant]
     Active Substance: ACETAMINOPHEN
     Dosage: 1000 MG, UNK
     Dates: start: 20170105, end: 20170107
  10. ALLANTOIN. [Concomitant]
     Active Substance: ALLANTOIN
     Indication: DRUG TOXICITY PROPHYLAXIS
  11. PLASIL [Concomitant]
     Active Substance: METOCLOPRAMIDE HYDROCHLORIDE
     Dosage: DAILY DOSE 30 MG
     Dates: start: 20150901
  12. STIVARGA [Suspect]
     Active Substance: REGORAFENIB
     Indication: COLORECTAL CANCER METASTATIC
     Dosage: 160 MG, QD
     Dates: start: 20161201, end: 20161208
  13. POLYETHYLENE GLYCOL [Concomitant]
     Active Substance: POLYETHYLENE GLYCOLS
     Indication: DRUG TOXICITY PROPHYLAXIS
  14. LANSOPRAZOL RATIOPHARMA [Concomitant]
     Dosage: DAILY DOSE 30 MG
     Dates: start: 20150427
  15. FLUIMUCIL [Concomitant]
     Active Substance: ACETYLCYSTEINE
     Dosage: DAILY DOSE 600 MG
     Dates: start: 20170216
  16. VITAMIN D [Concomitant]
     Active Substance: CHOLECALCIFEROL
     Dosage: DAILY DOSE 30 GTT
     Dates: start: 20150707

REACTIONS (4)
  - Haemoptysis [Recovered/Resolved]
  - Rash [Recovered/Resolved]
  - Productive cough [Recovered/Resolved]
  - Pyrexia [Recovered/Resolved]

NARRATIVE: CASE EVENT DATE: 20161207
